FAERS Safety Report 16698379 (Version 2)
Quarter: 2019Q3

REPORT INFORMATION
  Report Type: Spontaneous
  Country: US (occurrence: US)
  Receive Date: 20190813
  Receipt Date: 20190904
  Transmission Date: 20191004
  Serious: Yes (Other)
  Sender: FDA-Public Use
  Company Number: US-AKORN PHARMACEUTICALS-2019AKN01693

PATIENT
  Age: 20 Year
  Sex: Female
  Weight: 68.03 kg

DRUGS (2)
  1. PAXIL [Concomitant]
     Active Substance: PAROXETINE HYDROCHLORIDE
  2. MYORISAN [Suspect]
     Active Substance: ISOTRETINOIN
     Indication: ACNE CYSTIC
     Dosage: 40 MG, 2X/DAY
     Dates: start: 20190708, end: 20190731

REACTIONS (3)
  - Inappropriate affect [Unknown]
  - Depression [Unknown]
  - Dry eye [Unknown]

NARRATIVE: CASE EVENT DATE: 201907
